FAERS Safety Report 5809473-0 (Version None)
Quarter: 2008Q3

REPORT INFORMATION
  Report Type: 
  Country: None (occurrence: None)
  Receive Date: 20080715
  Receipt Date: 20080708
  Transmission Date: 20090109
  Serious: Yes (Death)
  Sender: FDA-Public Use
  Company Number: IN-BRISTOL-MYERS SQUIBB COMPANY-14248272

PATIENT
  Age: 65 Year
  Sex: Female

DRUGS (3)
  1. TAXOL [Suspect]
     Dosage: 1ST CYCLE 12MAR08-14MAR08 2ND CYCLE 01APR08-03APR08
     Dates: start: 20080401, end: 20080403
  2. CISPLATIN [Suspect]
     Dosage: 1ST CYCLE: 12MAR08-14MAR08 2ND CYCLE: 01APR08-03APR08
     Dates: start: 20080401, end: 20080403
  3. FILGRASTIM [Suspect]
     Dosage: 5 INJECTIONS WERE GIVEN
     Dates: start: 20080406, end: 20080410

REACTIONS (2)
  - DIARRHOEA HAEMORRHAGIC [None]
  - MUCOSAL INFLAMMATION [None]
